FAERS Safety Report 6882779-2 (Version None)
Quarter: 2010Q3

REPORT INFORMATION
  Report Type: 
  Country: None (occurrence: None)
  Receive Date: 20100729
  Receipt Date: 20100720
  Transmission Date: 20110219
  Serious: Yes (Hospitalization)
  Sender: FDA-Public Use
  Company Number: LT-ROCHE-716335

PATIENT
  Sex: Female
  Weight: 53 kg

DRUGS (3)
  1. METHOXY POLYETHYLENE GLYCOL-EPOETIN BETA [Suspect]
     Dosage: FORM: PFS; DATE OF LAST DOSE PRIOR TO SAE: 30 JUNE 2010
     Route: 058
     Dates: start: 20100331
  2. ACIDUM FOLICUM [Concomitant]
     Dates: start: 20090115
  3. CALCIGRAN [Concomitant]
     Dosage: DRUG REPORTED: CALCIGRANUM
     Dates: start: 20090115

REACTIONS (1)
  - HAEMOLYSIS [None]
